FAERS Safety Report 7635134-1 (Version None)
Quarter: 2011Q3

REPORT INFORMATION
  Report Type: 
  Country: None (occurrence: None)
  Receive Date: 20110726
  Receipt Date: 20110704
  Transmission Date: 20111222
  Serious: Yes (Other)
  Sender: FDA-Public Use
  Company Number: PHFR2011GB04007

PATIENT
  Sex: Female

DRUGS (6)
  1. EXELON [Suspect]
     Dosage: 9.5 MG, DAILY
     Route: 062
     Dates: end: 20100803
  2. SIMVASTATIN [Concomitant]
     Dosage: 40 MG, DAILY
  3. LAMOTRIGINE [Concomitant]
     Dosage: UNK UKN, UNK
  4. DULOXETINE HYDROCHLORIDE [Concomitant]
     Dosage: 60 MG, DAILY
     Route: 065
  5. ASPIRIN [Concomitant]
     Dosage: 75 MG, DAILY
     Route: 065
  6. EXELON [Suspect]
     Dosage: 4.6 MG, DAILY
     Route: 062
     Dates: start: 20100614

REACTIONS (4)
  - DEMENTIA ALZHEIMER'S TYPE [None]
  - EPILEPSY [None]
  - APPLICATION SITE ERYTHEMA [None]
  - APPLICATION SITE PRURITUS [None]
